FAERS Safety Report 15930319 (Version 1)
Quarter: 2019Q1

REPORT INFORMATION
  Report Type: Spontaneous
  Country: BR (occurrence: BR)
  Receive Date: 20190207
  Receipt Date: 20190207
  Transmission Date: 20190417
  Serious: Yes (Other)
  Sender: FDA-Public Use
  Company Number: BR-BRISTOL-MYERS SQUIBB COMPANY-BMS-2019-012621

PATIENT
  Age: 44 Year
  Sex: Female

DRUGS (1)
  1. TRIAMCINOLONE ACETONIDE. [Suspect]
     Active Substance: TRIAMCINOLONE ACETONIDE
     Indication: VOGT-KOYANAGI-HARADA SYNDROME
     Route: 050

REACTIONS (3)
  - Product use in unapproved indication [Unknown]
  - Vogt-Koyanagi-Harada syndrome [Unknown]
  - Product use issue [Unknown]
